FAERS Safety Report 21584601 (Version 2)
Quarter: 2022Q4

REPORT INFORMATION
  Report Type: Report from Study
  Country: US (occurrence: US)
  Receive Date: 20221111
  Receipt Date: 20221122
  Transmission Date: 20230113
  Serious: Yes (Death, Life-Threatening, Other)
  Sender: FDA-Public Use
  Company Number: US-GILEAD-2022-0604539

PATIENT
  Age: 79 Year
  Sex: Male

DRUGS (16)
  1. BREXUCABTAGENE AUTOLEUCEL [Suspect]
     Active Substance: BREXUCABTAGENE AUTOLEUCEL
     Indication: Mantle cell lymphoma
     Dosage: UNK
     Route: 042
     Dates: start: 20210517, end: 20210517
  2. ITACITINIB [Suspect]
     Active Substance: ITACITINIB
     Indication: Mantle cell lymphoma
     Dosage: 200 MG, QD
     Route: 048
     Dates: start: 20210514, end: 20210525
  3. RESTASIS [Concomitant]
     Active Substance: CYCLOSPORINE
  4. PROCHLORPERAZINE [Concomitant]
     Active Substance: PROCHLORPERAZINE
  5. LATANOPROST [Concomitant]
     Active Substance: LATANOPROST
  6. AMLODIPINE [Concomitant]
     Active Substance: AMLODIPINE BESYLATE
  7. ALLOPURINOL [Concomitant]
     Active Substance: ALLOPURINOL
  8. ACYCLOVIR [Concomitant]
     Active Substance: ACYCLOVIR
  9. MIDAZOLAM [Concomitant]
     Active Substance: MIDAZOLAM
  10. FENTANYL 3 DAY [Concomitant]
  11. CALCIUM GLUCONATE [Concomitant]
     Active Substance: CALCIUM GLUCONATE
  12. CYCLOPHOSPHAMIDE [Concomitant]
     Active Substance: CYCLOPHOSPHAMIDE
  13. FLUDARABINE [Concomitant]
     Active Substance: FLUDARABINE PHOSPHATE
  14. PALONOSETRON [Concomitant]
     Active Substance: PALONOSETRON
  15. PEGFILGRASTIM [Concomitant]
     Active Substance: PEGFILGRASTIM
  16. ENOXAPARIN [Concomitant]
     Active Substance: ENOXAPARIN

REACTIONS (2)
  - Multiple organ dysfunction syndrome [Fatal]
  - Hypotension [Not Recovered/Not Resolved]

NARRATIVE: CASE EVENT DATE: 20210602
